FAERS Safety Report 5488396-3 (Version None)
Quarter: 2007Q4

REPORT INFORMATION
  Report Type: 
  Country: None (occurrence: None)
  Receive Date: 20071005
  Receipt Date: 20070820
  Transmission Date: 20080405
  Serious: No
  Sender: FDA-Public Use
  Company Number: PHEH2007US11355

PATIENT
  Sex: Female

DRUGS (1)
  1. TEKTURNA [Suspect]
     Dosage: 150 MG ORAL, 300 MG ORAL
     Route: 048

REACTIONS (9)
  - ASTHENIA [None]
  - BURNING SENSATION [None]
  - DRUG INEFFECTIVE [None]
  - GAIT DISTURBANCE [None]
  - INSOMNIA [None]
  - MUSCLE SPASMS [None]
  - MUSCLE TIGHTNESS [None]
  - PAIN [None]
  - TREMOR [None]
